FAERS Safety Report 15537225 (Version 1)
Quarter: 2018Q4

REPORT INFORMATION
  Report Type: Spontaneous
  Country: US (occurrence: US)
  Receive Date: 20181016
  Receipt Date: 20181016
  Transmission Date: 20190205
  Serious: No
  Sender: FDA-Public Use
  Company Number: None

PATIENT
  Age: 37 Year
  Sex: Male

DRUGS (1)
  1. ENBREL [Suspect]
     Active Substance: ETANERCEPT
     Dates: start: 201510

REACTIONS (3)
  - Insurance issue [None]
  - Musculoskeletal stiffness [None]
  - Therapy cessation [None]

NARRATIVE: CASE EVENT DATE: 20180625
